FAERS Safety Report 9817336 (Version 2)
Quarter: 2014Q1

REPORT INFORMATION
  Report Type: Report from Study
  Country: PE (occurrence: PE)
  Receive Date: 20140115
  Receipt Date: 20140115
  Transmission Date: 20141002
  Serious: Yes (Hospitalization)
  Sender: FDA-Public Use
  Company Number: PE-ROCHE-1282453

PATIENT
  Age: 70 Year
  Sex: Female

DRUGS (4)
  1. HERCEPTIN [Suspect]
     Indication: BREAST CANCER
     Route: 042
     Dates: start: 20130827, end: 20131024
  2. PHENYTOIN [Concomitant]
     Route: 048
     Dates: start: 201309
  3. DEXAMETHASONE [Concomitant]
     Route: 048
     Dates: start: 201309
  4. PANADOL [Concomitant]
     Route: 048
     Dates: start: 20130927

REACTIONS (7)
  - Convulsion [Recovered/Resolved]
  - Skin disorder [Recovered/Resolved]
  - Convulsion [Recovered/Resolved]
  - Headache [Recovered/Resolved]
  - Headache [Not Recovered/Not Resolved]
  - Diarrhoea [Recovered/Resolved]
  - Constipation [Recovered/Resolved]
